FAERS Safety Report 9412628 (Version 1)
Quarter: 2013Q3

REPORT INFORMATION
  Report Type: Spontaneous
  Country: US (occurrence: US)
  Receive Date: 20130722
  Receipt Date: 20130722
  Transmission Date: 20140515
  Serious: No
  Sender: FDA-Public Use
  Company Number: US-TARO-2012P1058931

PATIENT
  Age: 31 Year
  Sex: Female
  Weight: 63.5 kg

DRUGS (3)
  1. CLOTRIMAZOLE AND BETAMETHASONE DIPROPIONATE [Suspect]
     Route: 061
     Dates: start: 201209, end: 201209
  2. KETOCONAZOLE [Suspect]
     Dates: start: 201209
  3. PROZAC [Concomitant]
     Dates: start: 201203

REACTIONS (1)
  - Alopecia [Recovered/Resolved with Sequelae]
